FAERS Safety Report 7031057-X (Version None)
Quarter: 2010Q4

REPORT INFORMATION
  Report Type: 
  Country: None (occurrence: None)
  Receive Date: 20101006
  Receipt Date: 20100924
  Transmission Date: 20110411
  Serious: Yes (Hospitalization)
  Sender: FDA-Public Use
  Company Number: US-CELGENEUS-163-21880-10092581

PATIENT
  Sex: Male

DRUGS (2)
  1. REVLIMID [Suspect]
     Indication: MULTIPLE MYELOMA
     Route: 048
     Dates: start: 20080118
  2. REVLIMID [Suspect]
     Dosage: 10MG ALTERNATING WITH 25 MG
     Route: 048
     Dates: start: 20061101

REACTIONS (1)
  - SUPERIOR VENA CAVAL OCCLUSION [None]
